FAERS Safety Report 26185745 (Version 1)
Quarter: 2025Q4

REPORT INFORMATION
  Report Type: Spontaneous
  Country: US (occurrence: None)
  Receive Date: 20251219
  Receipt Date: 20251219
  Transmission Date: 20260117
  Serious: Yes (Hospitalization)
  Sender: FDA-CTU
  Company Number: None

PATIENT
  Age: 64 Year
  Sex: Male

DRUGS (2)
  1. TAVNEOS [Suspect]
     Active Substance: AVACOPAN
     Dosage: FREQUENCY : TWICE A DAY;
     Route: 048
  2. TAVNEOS [Concomitant]
     Active Substance: AVACOPAN
     Dates: start: 20250905

REACTIONS (5)
  - Product use issue [None]
  - Insurance issue [None]
  - Urine output decreased [None]
  - Asthenia [None]
  - Blood urine present [None]

NARRATIVE: CASE EVENT DATE: 20251219
